FAERS Safety Report 8440656-X (Version None)
Quarter: 2012Q2

REPORT INFORMATION
  Report Type: 
  Country: None (occurrence: None)
  Receive Date: 20120615
  Receipt Date: 20120606
  Transmission Date: 20120825
  Serious: Yes (Hospitalization)
  Sender: FDA-Public Use
  Company Number: CA-JNJFOC-20120603887

PATIENT
  Sex: Male
  Weight: 115 kg

DRUGS (2)
  1. REMICADE [Suspect]
     Indication: CROHN'S DISEASE
     Route: 042
     Dates: start: 20120606, end: 20120606
  2. REMICADE [Suspect]
     Route: 042

REACTIONS (6)
  - INFUSION RELATED REACTION [None]
  - TREMOR [None]
  - CHILLS [None]
  - BLOOD PRESSURE INCREASED [None]
  - HEART RATE INCREASED [None]
  - BODY TEMPERATURE INCREASED [None]
